FAERS Safety Report 17427533 (Version 1)
Quarter: 2020Q1

REPORT INFORMATION
  Report Type: Spontaneous
  Country: US (occurrence: US)
  Receive Date: 20200218
  Receipt Date: 20200218
  Transmission Date: 20200409
  Serious: No
  Sender: FDA-Public Use
  Company Number: US-LUPIN PHARMACEUTICALS INC.-2020-00615

PATIENT
  Age: 68 Year
  Sex: Male
  Weight: 62.59 kg

DRUGS (1)
  1. LEVOTHYROXINE SODIUM TABLETS USP, 100 MCG [Suspect]
     Active Substance: LEVOTHYROXINE SODIUM
     Indication: THYROID DISORDER
     Dosage: UNK, QD
     Route: 048
     Dates: start: 20191101, end: 20191220

REACTIONS (6)
  - Chills [Recovered/Resolved]
  - Musculoskeletal chest pain [Recovered/Resolved]
  - Pyrexia [Recovered/Resolved]
  - Night sweats [Recovered/Resolved]
  - Weight decreased [Recovered/Resolved]
  - Fatigue [Recovered/Resolved]

NARRATIVE: CASE EVENT DATE: 20191103
